FAERS Safety Report 17841234 (Version 1)
Quarter: 2020Q2

REPORT INFORMATION
  Report Type: Report from Study
  Country: CO (occurrence: CO)
  Receive Date: 20200529
  Receipt Date: 20200529
  Transmission Date: 20200714
  Serious: Yes (Hospitalization)
  Sender: FDA-Public Use
  Company Number: NVSC2018CO004228

PATIENT
  Sex: Female

DRUGS (1)
  1. EXJADE [Suspect]
     Active Substance: DEFERASIROX
     Indication: THALASSAEMIA
     Dosage: 2 DF, QD
     Route: 065

REACTIONS (4)
  - Vomiting [Unknown]
  - Headache [Unknown]
  - Migraine [Unknown]
  - Haemoglobin decreased [Unknown]
